FAERS Safety Report 9402907 (Version 1)
Quarter: 2013Q3

REPORT INFORMATION
  Report Type: Spontaneous
  Country: US (occurrence: None)
  Receive Date: 20130715
  Receipt Date: 20130715
  Transmission Date: 20140515
  Serious: Yes (Other)
  Sender: FDA-Public Use
  Company Number: None

PATIENT
  Age: 26 None
  Sex: Female

DRUGS (2)
  1. KENALOG [Suspect]
     Indication: DRUG HYPERSENSITIVITY
     Dates: start: 20130128, end: 20130628
  2. VITAMINS [Concomitant]

REACTIONS (2)
  - Injection site mass [None]
  - Injection site reaction [None]
